FAERS Safety Report 8101177 (Version 4)
Quarter: 2013Q1

REPORT INFORMATION
  Report Type: Spontaneous
  Country: JP (occurrence: None)
  Receive Date: 20110815
  Receipt Date: 20121226
  Transmission Date: 20140127
  Serious: Yes (Life-Threatening)
  Sender: FDA-Public Use
  Company Number: TCI2011A04290

PATIENT
  Age: 67 Year
  Sex: Male

DRUGS (9)
  1. ACTOS [Suspect]
     Indication: DIABETES MELLITUS
     Dosage: 15 MG (15 MG, 1 IN ID)
     Route: 048
  2. BLOPRESS (CANDESARTAN CILEXETIL) [Concomitant]
  3. ASPIRIN [Concomitant]
  4. NORVASC [Concomitant]
  5. BISOPROLOL FUMARATE [Concomitant]
  6. PLETAL [Concomitant]
  7. PLAVIX [Concomitant]
  8. NATEGLINIDE [Concomitant]
  9. NATEGLINIDE [Concomitant]

REACTIONS (2)
  - Bladder cancer [None]
  - Peripheral arterial occlusive disease [None]
